FAERS Safety Report 14145710 (Version 5)
Quarter: 2017Q4

REPORT INFORMATION
  Report Type: Report from Study
  Country: JP (occurrence: JP)
  Receive Date: 20171031
  Receipt Date: 20171115
  Transmission Date: 20180321
  Serious: Yes (Hospitalization)
  Sender: FDA-Public Use
  Company Number: JP-ROCHE-2014483

PATIENT
  Age: 56 Year
  Sex: Female

DRUGS (12)
  1. CARBOPLATIN. [Suspect]
     Active Substance: CARBOPLATIN
     Indication: OVARIAN CANCER
     Dosage: DOSE OF LAST CARBOPLATIN ADMINISTERED PRIOR TO AE ONSET 547 MG ON 12/OCT/2017?TARGET AREA UNDER THE
     Route: 042
     Dates: start: 20171012
  2. POLARAMINE [Concomitant]
     Active Substance: DEXCHLORPHENIRAMINE MALEATE
     Indication: HYPERSENSITIVITY
     Route: 065
     Dates: start: 20171012, end: 20171012
  3. LYRICA [Concomitant]
     Active Substance: PREGABALIN
     Indication: POST HERPETIC NEURALGIA
     Route: 065
     Dates: start: 20170701
  4. NEUROTROPIN (JAPAN) [Concomitant]
     Indication: POST HERPETIC NEURALGIA
     Route: 065
     Dates: start: 20170701
  5. DEXAMETHASONE. [Concomitant]
     Active Substance: DEXAMETHASONE
     Indication: NAUSEA
     Route: 042
     Dates: start: 20171012, end: 20171012
  6. GASTER [Concomitant]
     Active Substance: FAMOTIDINE
     Indication: HYPERSENSITIVITY
     Route: 065
     Dates: start: 20171012, end: 20171012
  7. MECOBALAMIN [Concomitant]
     Active Substance: METHYLCOBALAMIN
     Indication: POST HERPETIC NEURALGIA
     Route: 065
     Dates: start: 20170701
  8. ALOXI [Concomitant]
     Active Substance: PALONOSETRON HYDROCHLORIDE
     Indication: NAUSEA
     Route: 065
     Dates: start: 20171012, end: 20171012
  9. ATEZOLIZUMAB. [Suspect]
     Active Substance: ATEZOLIZUMAB
     Indication: OVARIAN CANCER
     Dosage: DATE OF MOST RECENT DOSE OF ATEZOLIZUMAB PRIOR TO SAE ONSET: 12/OCT/2017
     Route: 042
     Dates: start: 20171012
  10. MAGMITT [Concomitant]
     Active Substance: MAGNESIUM OXIDE
     Indication: CONSTIPATION
     Route: 065
     Dates: start: 20170920
  11. BEVACIZUMAB. [Suspect]
     Active Substance: BEVACIZUMAB
     Indication: OVARIAN CANCER
     Dosage: DATE OF MOST RECENT DOSE OF BEVACIZUMAB PRIOR TO SAE ONSET: 12/OCT/2017
     Route: 042
     Dates: start: 20171012
  12. PACLITAXEL. [Suspect]
     Active Substance: PACLITAXEL
     Indication: OVARIAN CANCER
     Dosage: DOSE OF LAST PACLITAXEL ADMINISTERED PRIOR TO AE ONSET 266 MG ON 12/OCT/2017
     Route: 042
     Dates: start: 20171012

REACTIONS (1)
  - Infectious mononucleosis [Recovered/Resolved]

NARRATIVE: CASE EVENT DATE: 20171016
